FAERS Safety Report 4488804-0 (Version None)
Quarter: 2004Q4

REPORT INFORMATION
  Report Type: 
  Country: None (occurrence: None)
  Receive Date: 20041029
  Receipt Date: 20000301
  Transmission Date: 20050328
  Serious: Yes (Death, Hospitalization)
  Sender: FDA-Public Use
  Company Number: US-MERCK-00030079

PATIENT
  Age: 73 Year
  Sex: Female

DRUGS (2)
  1. VIOXX [Suspect]
     Indication: OSTEOARTHRITIS
     Route: 048
     Dates: start: 19991101, end: 19990101
  2. INDOCIN [Concomitant]
     Route: 065

REACTIONS (4)
  - ADVERSE EVENT [None]
  - HAEMORRHAGE [None]
  - RESPIRATORY DISORDER [None]
  - WEIGHT INCREASED [None]
